FAERS Safety Report 7036005-4 (Version None)
Quarter: 2010Q4

REPORT INFORMATION
  Report Type: 
  Country: None (occurrence: None)
  Receive Date: 20101008
  Receipt Date: 20100928
  Transmission Date: 20110411
  Serious: Yes (Hospitalization)
  Sender: FDA-Public Use
  Company Number: US-ABBOTT-10P-163-0673829-00

PATIENT
  Sex: Female
  Weight: 68.1 kg

DRUGS (2)
  1. SYNTHROID [Suspect]
     Indication: HYPOTHYROIDISM
  2. TIROSINT [Suspect]
     Indication: HYPOTHYROIDISM
     Dates: start: 20100908, end: 20100908

REACTIONS (5)
  - ATAXIA [None]
  - DIARRHOEA [None]
  - FEELING ABNORMAL [None]
  - THYROID DISORDER [None]
  - TREMOR [None]
